FAERS Safety Report 6821965-4 (Version None)
Quarter: 2010Q3

REPORT INFORMATION
  Report Type: 
  Country: None (occurrence: None)
  Receive Date: 20100708
  Receipt Date: 20100628
  Transmission Date: 20110219
  Serious: No
  Sender: FDA-Public Use
  Company Number: 2008BI029173

PATIENT
  Age: 36 Year
  Sex: Female

DRUGS (2)
  1. TYSABRI [Suspect]
     Indication: MULTIPLE SCLEROSIS
     Route: 042
     Dates: start: 20071212, end: 20081030
  2. TYSABRI [Suspect]
     Route: 042
     Dates: start: 20090106

REACTIONS (9)
  - COORDINATION ABNORMAL [None]
  - DARK CIRCLES UNDER EYES [None]
  - DYSPHEMIA [None]
  - FATIGUE [None]
  - HEADACHE [None]
  - LOSS OF CONTROL OF LEGS [None]
  - MOBILITY DECREASED [None]
  - MUSCULAR WEAKNESS [None]
  - URINARY INCONTINENCE [None]
